FAERS Safety Report 6934133-2 (Version None)
Quarter: 2010Q3

REPORT INFORMATION
  Report Type: 
  Country: None (occurrence: None)
  Receive Date: 20100820
  Receipt Date: 20100818
  Transmission Date: 20110219
  Serious: Yes (Other)
  Sender: FDA-Public Use
  Company Number: GB-EISAI INC.-E2090-01280-SPO-GB

PATIENT
  Age: 41 Year
  Sex: Male

DRUGS (2)
  1. ZONEGRAN [Suspect]
     Indication: EPILEPSY
     Route: 048
     Dates: start: 20100401, end: 20100508
  2. TEGRETOL [Concomitant]
     Indication: EPILEPSY
     Route: 048
     Dates: start: 20090501

REACTIONS (5)
  - ERYTHEMA [None]
  - RASH [None]
  - ROSACEA [None]
  - SWELLING FACE [None]
  - TENDERNESS [None]
